FAERS Safety Report 8502626-2 (Version None)
Quarter: 2012Q3

REPORT INFORMATION
  Report Type: 
  Country: None (occurrence: None)
  Receive Date: 20120711
  Receipt Date: 20120627
  Transmission Date: 20120928
  Serious: Yes (Hospitalization)
  Sender: FDA-Public Use
  Company Number: FR-NAPPMUNDI-GBR-2012-0010910

PATIENT
  Sex: Male

DRUGS (5)
  1. OXYCONTIN [Suspect]
     Indication: PRODUCT USED FOR UNKNOWN INDICATION
     Dosage: 5MG AND 10 MG DAILY
     Route: 048
     Dates: start: 20110401
  2. RAMIPRIL [Concomitant]
     Dosage: UNK
     Dates: start: 20110401, end: 20110418
  3. LASIX [Concomitant]
     Dosage: UNK
     Dates: start: 20110401, end: 20110418
  4. RAMIPRIL [Concomitant]
     Dosage: UNK
     Dates: start: 20110427
  5. ACUPAN [Concomitant]
     Dosage: UNK
     Dates: start: 20110401

REACTIONS (3)
  - POLLAKIURIA [None]
  - OLIGURIA [None]
  - PELVIC PAIN [None]
